FAERS Safety Report 23965722 (Version 1)
Quarter: 2024Q2

REPORT INFORMATION
  Report Type: Report from Study
  Country: MX (occurrence: MX)
  Receive Date: 20240612
  Receipt Date: 20240612
  Transmission Date: 20240716
  Serious: Yes (Other)
  Sender: FDA-Public Use
  Company Number: MX-UCBSA-2024029174

PATIENT
  Sex: Male
  Weight: 78 kg

DRUGS (1)
  1. CERTOLIZUMAB PEGOL [Suspect]
     Active Substance: CERTOLIZUMAB PEGOL
     Indication: Product used for unknown indication
     Dosage: UNK, EV 2 WEEKS(QOW)
     Route: 058
     Dates: start: 20220103

REACTIONS (1)
  - Tuberculosis [Unknown]
